FAERS Safety Report 7133171-7 (Version None)
Quarter: 2010Q4

REPORT INFORMATION
  Report Type: 
  Country: None (occurrence: None)
  Receive Date: 20101202
  Receipt Date: 20101129
  Transmission Date: 20110411
  Serious: Yes (Other)
  Sender: FDA-Public Use
  Company Number: DE-ROXANE LABORATORIES, INC.-2010-RO-01556RO

PATIENT
  Age: 59 Year
  Sex: Female
  Weight: 74 kg

DRUGS (2)
  1. MORPHINE [Suspect]
     Indication: SPINAL FUSION SURGERY
     Route: 037
  2. MORPHINE [Suspect]
     Indication: SPONDYLOLISTHESIS

REACTIONS (2)
  - BREATHING-RELATED SLEEP DISORDER [None]
  - HYPERSOMNIA [None]
